FAERS Safety Report 12138968 (Version 2)
Quarter: 2017Q2

REPORT INFORMATION
  Report Type: Spontaneous
  Country: US (occurrence: US)
  Receive Date: 20160302
  Receipt Date: 20170620
  Transmission Date: 20170829
  Serious: No
  Sender: FDA-Public Use
  Company Number: US-009507513-1602USA012220

PATIENT
  Sex: Female

DRUGS (2)
  1. DULERA [Suspect]
     Active Substance: FORMOTEROL FUMARATE DIHYDRATE\MOMETASONE FUROATE
     Dosage: 1 PUFF, QD
     Route: 055
  2. DULERA [Suspect]
     Active Substance: FORMOTEROL FUMARATE DIHYDRATE\MOMETASONE FUROATE
     Dosage: UNK

REACTIONS (5)
  - Product quality issue [Unknown]
  - Drug dose omission [Unknown]
  - Product use issue [Unknown]
  - Expired product administered [Unknown]
  - No adverse event [Unknown]
